FAERS Safety Report 17082355 (Version 2)
Quarter: 2019Q4

REPORT INFORMATION
  Report Type: Spontaneous
  Country: US (occurrence: US)
  Receive Date: 20191127
  Receipt Date: 20191204
  Transmission Date: 20200122
  Serious: No
  Sender: FDA-Public Use
  Company Number: US-PFIZER INC-2019509198

PATIENT
  Age: 18 Year
  Sex: Female
  Weight: 60.33 kg

DRUGS (1)
  1. DEPO-PROVERA [Suspect]
     Active Substance: MEDROXYPROGESTERONE ACETATE
     Indication: MUSCLE SPASMS
     Dosage: UNK, EVERY 3 MONTHS [INTRAMUSCULAR INJECTION EVERY 3 MONTHS]
     Route: 030
     Dates: start: 20190823

REACTIONS (8)
  - Mania [Not Recovered/Not Resolved]
  - Paranoia [Unknown]
  - Off label use [Unknown]
  - Product use in unapproved indication [Unknown]
  - Affective disorder [Unknown]
  - Insomnia [Not Recovered/Not Resolved]
  - Personality change [Unknown]
  - Metrorrhagia [Recovered/Resolved]

NARRATIVE: CASE EVENT DATE: 2019
